FAERS Safety Report 8972379 (Version 2)
Quarter: 2013Q4

REPORT INFORMATION
  Report Type: Spontaneous
  Country: US (occurrence: US)
  Receive Date: 20121218
  Receipt Date: 20131118
  Transmission Date: 20140711
  Serious: Yes (Other)
  Sender: FDA-Public Use
  Company Number: CHPA2012US024940

PATIENT
  Age: 52 Year
  Sex: Female

DRUGS (3)
  1. MAALOX ANTACID/ANTIGAS MAX QDTABS ASST [Suspect]
     Indication: GASTRIC DISORDER
     Dosage: 1 TO 2 DF, PRN
     Route: 048
     Dates: start: 1992
  2. MAALOX ANTACID/ANTIGAS MAX LIQ UNKNOWN [Suspect]
     Dosage: UNK, UNK
     Route: 048
     Dates: start: 1992
  3. ZANTAC [Concomitant]
     Dosage: UNK, UNK

REACTIONS (13)
  - Chronic obstructive pulmonary disease [Recovered/Resolved]
  - Transient ischaemic attack [Recovered/Resolved]
  - Syncope [Not Recovered/Not Resolved]
  - Loss of consciousness [Not Recovered/Not Resolved]
  - Pneumonia [Unknown]
  - Joint dislocation [Not Recovered/Not Resolved]
  - Wrist fracture [Not Recovered/Not Resolved]
  - Osteoporosis [Not Recovered/Not Resolved]
  - Rheumatoid arthritis [Not Recovered/Not Resolved]
  - Weight decreased [Not Recovered/Not Resolved]
  - Premature menopause [Recovered/Resolved]
  - Swelling [Not Recovered/Not Resolved]
  - Hypoaesthesia [Unknown]
